FAERS Safety Report 6305643-6 (Version None)
Quarter: 2009Q3

REPORT INFORMATION
  Report Type: 
  Country: None (occurrence: None)
  Receive Date: 20090806
  Receipt Date: 20090728
  Transmission Date: 20100115
  Serious: Yes (Hospitalization)
  Sender: FDA-Public Use
  Company Number: 8049751

PATIENT
  Age: 77 Year
  Sex: Female
  Weight: 77 kg

DRUGS (2)
  1. KEPPRA [Suspect]
     Indication: EPILEPSY
  2. DEPAKENE [Suspect]
     Indication: EPILEPSY
     Dates: start: 20081013

REACTIONS (1)
  - DEMENTIA [None]
